FAERS Safety Report 8424487-2 (Version None)
Quarter: 2012Q2

REPORT INFORMATION
  Report Type: 
  Country: None (occurrence: None)
  Receive Date: 20120611
  Receipt Date: 20120601
  Transmission Date: 20120825
  Serious: Yes (Life-Threatening)
  Sender: FDA-Public Use
  Company Number: DE-AMGEN-DEUSP2012035248

PATIENT
  Age: 66 Year
  Sex: Female

DRUGS (3)
  1. ENBREL [Suspect]
     Indication: RHEUMATOID ARTHRITIS
     Dosage: 50 MG, WEEKLY
     Dates: start: 20120228
  2. ANTIBIOTICS [Concomitant]
     Dosage: UNK
  3. METHOTREXATE SODIUM [Concomitant]
     Dosage: UNK

REACTIONS (3)
  - DYSPNOEA [None]
  - INFECTION [None]
  - OXYGEN SATURATION DECREASED [None]
